FAERS Safety Report 5264615-3 (Version None)
Quarter: 2007Q1

REPORT INFORMATION
  Report Type: 
  Country: None (occurrence: None)
  Receive Date: 20061213
  Receipt Date: 20041018
  Transmission Date: 20070707
  Serious: Yes (Other)
  Sender: FDA-Public Use
  Company Number: 2004UW21586

PATIENT
  Age: 71 Year
  Sex: Male
  Weight: 90.718 kg

DRUGS (8)
  1. IRESSA [Suspect]
     Indication: NON-SMALL CELL LUNG CANCER
     Dosage: 250 MG PO
     Route: 048
     Dates: start: 20040801
  2. FELODIPINE [Concomitant]
  3. INSULIN [Concomitant]
  4. HYDROCHLOROTHIAZIDE [Concomitant]
  5. PAXIL [Concomitant]
  6. ZOCOR [Concomitant]
  7. ASPIRIN [Concomitant]
  8. ACIPHEX [Concomitant]

REACTIONS (3)
  - ACNE [None]
  - RASH [None]
  - WEIGHT INCREASED [None]
